FAERS Safety Report 5542658-X (Version None)
Quarter: 2007Q4

REPORT INFORMATION
  Report Type: 
  Country: None (occurrence: None)
  Receive Date: 20071210
  Receipt Date: 20071030
  Transmission Date: 20080405
  Serious: Yes (Life-Threatening, Hospitalization, Other)
  Sender: FDA-Public Use
  Company Number: US-PFIZER INC-2007081548

PATIENT
  Age: 54 Year
  Sex: Female
  Weight: 70 kg

DRUGS (8)
  1. LYRICA [Suspect]
     Indication: CONVULSION
     Route: 048
     Dates: start: 20070605, end: 20070802
  2. LYRICA [Suspect]
     Indication: PAIN IN EXTREMITY
  3. GLUCOPHAGE [Concomitant]
  4. CELEXA [Concomitant]
  5. CELEBREX [Concomitant]
  6. VITAMIN CAP [Concomitant]
  7. VYTORIN [Concomitant]
  8. LAPRAZOL [Concomitant]

REACTIONS (5)
  - MALAISE [None]
  - NEPHRITIS INTERSTITIAL [None]
  - NERVOUSNESS [None]
  - RENAL FAILURE [None]
  - RENAL TUBULAR NECROSIS [None]
